FAERS Safety Report 5826818-6 (Version None)
Quarter: 2008Q3

REPORT INFORMATION
  Report Type: 
  Country: None (occurrence: None)
  Receive Date: 20080728
  Receipt Date: 20080728
  Transmission Date: 20090109
  Serious: Yes (Other)
  Sender: FDA-Public Use
  Company Number: None

PATIENT
  Sex: Female
  Weight: 83.9154 kg

DRUGS (2)
  1. NUVARING [Suspect]
     Indication: MENSTRUAL DISORDER
     Dosage: 1 RING 3 WK INSERT VAG
     Route: 067
     Dates: start: 20080720, end: 20080722
  2. NUVARING [Suspect]
     Indication: OVULATION DISORDER
     Dosage: 1 RING 3 WK INSERT VAG
     Route: 067
     Dates: start: 20080720, end: 20080722

REACTIONS (16)
  - ANXIETY [None]
  - CHILLS [None]
  - CRYING [None]
  - DEPRESSION [None]
  - DIARRHOEA [None]
  - DREAMY STATE [None]
  - FATIGUE [None]
  - FEELING ABNORMAL [None]
  - GASTROENTERITIS VIRAL [None]
  - LETHARGY [None]
  - MALAISE [None]
  - NAUSEA [None]
  - PYREXIA [None]
  - SOMNOLENCE [None]
  - SUICIDAL IDEATION [None]
  - VOMITING [None]
